FAERS Safety Report 4763777-1 (Version None)
Quarter: 2005Q3

REPORT INFORMATION
  Report Type: 
  Country: None (occurrence: None)
  Receive Date: 20050908
  Receipt Date: 20050831
  Transmission Date: 20060218
  Serious: Yes (Other)
  Sender: FDA-Public Use
  Company Number: PHEH2005US09814

PATIENT
  Age: 61 Year
  Sex: Male
  Weight: 64 kg

DRUGS (12)
  1. ZOMETA [Suspect]
     Indication: METASTASES TO BONE
     Dosage: 4 MG EVERY 28 DAYS
     Dates: start: 20021219, end: 20050602
  2. TAXOTERE [Concomitant]
  3. ARIMIDEX [Concomitant]
  4. PROCRIT [Concomitant]
  5. XELODA [Concomitant]
  6. TAMOXIFEN CITRATE [Concomitant]
  7. ARANESP [Concomitant]
  8. OXYCONTIN [Concomitant]
  9. ZOFRAN [Concomitant]
  10. DURAGESIC-100 [Concomitant]
  11. ATIVAN [Concomitant]
  12. DECADRON [Concomitant]

REACTIONS (6)
  - BONE DISORDER [None]
  - IMPAIRED HEALING [None]
  - MYRINGOTOMY [None]
  - OSTEOMYELITIS [None]
  - PAIN [None]
  - TOOTH EXTRACTION [None]
